FAERS Safety Report 10173723 (Version 1)
Quarter: 2014Q2

REPORT INFORMATION
  Report Type: Spontaneous
  Country: US (occurrence: None)
  Receive Date: 20140514
  Receipt Date: 20140514
  Transmission Date: 20141212
  Serious: Yes (Disabling)
  Sender: FDA-Public Use
  Company Number: None

PATIENT
  Age: 61 Year
  Sex: Female

DRUGS (1)
  1. FLUTICASON PROPIONATE [Suspect]
     Indication: SEASONAL ALLERGY
     Dosage: 1-2 SPRAYS IN EACH NOSTRIL DAILY
     Route: 045
     Dates: start: 20140220, end: 20140415

REACTIONS (2)
  - Anosmia [None]
  - Ageusia [None]
